FAERS Safety Report 10413066 (Version 1)
Quarter: 2014Q3

REPORT INFORMATION
  Report Type: Spontaneous
  Country: US (occurrence: None)
  Receive Date: 20140825
  Receipt Date: 20140825
  Transmission Date: 20150326
  Serious: No
  Sender: FDA-Public Use
  Company Number: 2013-20720

PATIENT
  Age: 69 Year
  Sex: Male

DRUGS (1)
  1. TESTOSTERONE CYPIONATE. [Suspect]
     Active Substance: TESTOSTERONE CYPIONATE
     Indication: BLOOD TESTOSTERONE DECREASED
     Route: 030
     Dates: end: 201310

REACTIONS (3)
  - Anger [None]
  - Psychomotor hyperactivity [None]
  - Emotional disorder [None]
